FAERS Safety Report 16543625 (Version 16)
Quarter: 2020Q3

REPORT INFORMATION
  Report Type: Report from Study
  Country: CN (occurrence: CN)
  Receive Date: 20190709
  Receipt Date: 20200819
  Transmission Date: 20201102
  Serious: Yes (Hospitalization)
  Sender: FDA-Public Use
  Company Number: CN-ROCHE-2348664

PATIENT
  Age: 75 Year
  Sex: Male
  Weight: 59 kg

DRUGS (21)
  1. DOMPERIDONE [Concomitant]
     Active Substance: DOMPERIDONE
     Dates: start: 20190626, end: 20190702
  2. PERINDOPRIL [Concomitant]
     Active Substance: PERINDOPRIL
     Indication: HYPERTENSION
     Dates: start: 20181024
  3. PHLOROGLUCINOL [Concomitant]
     Active Substance: PHLOROGLUCINOL
     Dates: start: 20190618, end: 20190618
  4. GLUCOPHAGE [Concomitant]
     Active Substance: METFORMIN HYDROCHLORIDE
     Indication: DIABETES MELLITUS
     Dates: start: 20181224
  5. ATEZOLIZUMAB. [Suspect]
     Active Substance: ATEZOLIZUMAB
     Indication: HEPATOCELLULAR CARCINOMA
     Dosage: ON 05/JUN/2019, HE RECEIVED MOST RECENT DOSE OF INTRAVENOUS ATEZOLIZUMAB PRIOR TO SERIOUS ADVERESE E
     Route: 042
     Dates: start: 20181109
  6. RECOMBINANT HUMAN ERYTHROPOIETIN [Concomitant]
     Active Substance: ERYTHROPOIETIN
     Dates: start: 20190712, end: 20190712
  7. SODIUM PHOSPHATE [Concomitant]
     Active Substance: SODIUM PHOSPHATE
     Dates: start: 20190614, end: 20190614
  8. RECOMBINANT HUMAN ERYTHROPOIETIN [Concomitant]
     Active Substance: ERYTHROPOIETIN
     Indication: ANAEMIA
     Dates: start: 20190626, end: 20190702
  9. BERBERINE HYDROCHLORIDE [Concomitant]
     Active Substance: BERBERINE
     Indication: INFECTION PROPHYLAXIS
     Dates: start: 20190614, end: 20190702
  10. NIFEDIPINE. [Concomitant]
     Active Substance: NIFEDIPINE
     Indication: HYPERTENSION
     Dosage: CONTROLLED?RELEASE TABLETS
     Dates: start: 20181018
  11. DOMPERIDONE [Concomitant]
     Active Substance: DOMPERIDONE
     Dates: start: 20190626, end: 20190702
  12. CEFOPERAZONE SODIUM;TAZOBACTAM SODIUM [Concomitant]
     Dates: start: 20190614, end: 20190615
  13. BEVACIZUMAB. [Suspect]
     Active Substance: BEVACIZUMAB
     Indication: HEPATOCELLULAR CARCINOMA
     Dosage: ON 05/JUN/2019, HE RECEIVED MOST RECENT DOSE OF INTRAVENOUS BEVACIZUMAB: 960 MG PRIOR TO SERIOUS ADV
     Route: 042
     Dates: start: 20181109
  14. INDAPAMIDE. [Concomitant]
     Active Substance: INDAPAMIDE
     Indication: HYPERTENSION
     Dates: start: 20181024
  15. CHARCOAL [Concomitant]
     Active Substance: ACTIVATED CHARCOAL
     Indication: CHRONIC KIDNEY DISEASE
     Dosage: MEDICINAL CHARCOAL TABLETS
     Dates: start: 20190221, end: 20191003
  16. VOGLIBOSE [Concomitant]
     Active Substance: VOGLIBOSE
     Indication: HYPOGLYCAEMIA
     Dosage: DISPERSIBLE TABLETS
     Dates: start: 20190320
  17. PANTOPRAZOLE SODIUM. [Concomitant]
     Active Substance: PANTOPRAZOLE SODIUM
     Dates: start: 20190614, end: 20190615
  18. PANTOPRAZOLE SODIUM. [Concomitant]
     Active Substance: PANTOPRAZOLE SODIUM
     Dates: start: 20190618, end: 20190618
  19. METOCLOPRAMIDE DIHYDROCHLORIDE [Concomitant]
     Dates: start: 20190626, end: 20190626
  20. LIPITOR [Concomitant]
     Active Substance: ATORVASTATIN CALCIUM
     Indication: HYPERTENSION
     Dosage: AUXILIARY TREATMENT
     Dates: start: 20181020
  21. PHLOROGLUCINOL [Concomitant]
     Active Substance: PHLOROGLUCINOL
     Indication: ABDOMINAL PAIN UPPER
     Dates: start: 20190614, end: 20190614

REACTIONS (1)
  - Duodenal ulcer [Recovered/Resolved]

NARRATIVE: CASE EVENT DATE: 20190702
